FAERS Safety Report 10227079 (Version 2)
Quarter: 2015Q3

REPORT INFORMATION
  Report Type: Spontaneous
  Country: TR (occurrence: TR)
  Receive Date: 20140610
  Receipt Date: 20150811
  Transmission Date: 20151125
  Serious: Yes (Hospitalization)
  Sender: FDA-Public Use
  Company Number: TR-TEVA-486823ISR

PATIENT
  Age: 45 Year
  Sex: Male

DRUGS (2)
  1. METHOTREXATE [Suspect]
     Active Substance: METHOTREXATE
     Dosage: 40 MG/WEEK
  2. METHOTREXATE [Suspect]
     Active Substance: METHOTREXATE
     Indication: PSORIASIS
     Dosage: 16 TABLETS OF 2.5 MG

REACTIONS (6)
  - Rash erythematous [Unknown]
  - Oedema [Unknown]
  - Hyperaemia [Unknown]
  - Rash [Unknown]
  - Photosensitivity reaction [Unknown]
  - Incorrect dose administered [Unknown]
